FAERS Safety Report 6671599-X (Version None)
Quarter: 2010Q2

REPORT INFORMATION
  Report Type: 
  Country: None (occurrence: None)
  Receive Date: 20100407
  Receipt Date: 20100326
  Transmission Date: 20101027
  Serious: Yes (Hospitalization, Disabling, Other)
  Sender: FDA-Public Use
  Company Number: JP-PFIZER INC-2010012339

PATIENT
  Age: 53 Year
  Sex: Female
  Weight: 39.7 kg

DRUGS (4)
  1. AZULFIDINE [Suspect]
     Indication: RHEUMATOID ARTHRITIS
     Dosage: 500 MG, 2X/DAY
     Route: 048
     Dates: start: 20090831, end: 20090915
  2. CELECOXIB [Concomitant]
     Route: 048
     Dates: start: 20090309, end: 20090920
  3. MUCOSTA [Concomitant]
     Route: 048
     Dates: start: 20090915, end: 20090916
  4. RIMATIL [Concomitant]
     Route: 048
     Dates: start: 20090915, end: 20090916

REACTIONS (3)
  - BASEDOW'S DISEASE [None]
  - DRUG RASH WITH EOSINOPHILIA AND SYSTEMIC SYMPTOMS [None]
  - HEPATIC FUNCTION ABNORMAL [None]
